FAERS Safety Report 9040959 (Version 1)
Quarter: 2013Q1

REPORT INFORMATION
  Report Type: Spontaneous
  Country: US (occurrence: None)
  Receive Date: 20130123
  Receipt Date: 20130123
  Transmission Date: 20140127
  Serious: Yes (Death)
  Sender: FDA-Public Use
  Company Number: None

PATIENT
  Sex: Female
  Weight: 112 kg

DRUGS (2)
  1. BENDAMUSTINE HYDROCHLORIDE [Suspect]
  2. RITUXIMAB [Suspect]

REACTIONS (4)
  - Pain [None]
  - Asthenia [None]
  - Abasia [None]
  - Refusal of treatment by patient [None]
